FAERS Safety Report 15608621 (Version 1)
Quarter: 2018Q4

REPORT INFORMATION
  Report Type: Report from Study
  Country: CA (occurrence: CA)
  Receive Date: 20181112
  Receipt Date: 20181112
  Transmission Date: 20190205
  Serious: Yes (Death)
  Sender: FDA-Public Use
  Company Number: CA-SA-2018SA302326

PATIENT
  Sex: Male

DRUGS (1)
  1. CABAZITAXEL [Suspect]
     Active Substance: CABAZITAXEL
     Indication: PROSTATE CANCER
     Dosage: 37 MG
     Route: 042
     Dates: start: 20181017, end: 20181017

REACTIONS (4)
  - Multiple organ dysfunction syndrome [Fatal]
  - Colitis [Fatal]
  - Septic shock [Fatal]
  - Sepsis [Fatal]
